FAERS Safety Report 9721703 (Version 1)
Quarter: 2013Q4

REPORT INFORMATION
  Report Type: Spontaneous
  Country: US (occurrence: US)
  Receive Date: 20131201
  Receipt Date: 20131201
  Transmission Date: 20140711
  Serious: No
  Sender: FDA-Public Use
  Company Number: US-ABBVIE-13P-163-1147455-00

PATIENT
  Sex: Male
  Weight: 61.29 kg

DRUGS (2)
  1. ANDROGEL [Suspect]
     Indication: BLOOD TESTOSTERONE DECREASED
     Dosage: 20.25 MILLGRAMS ONCE OR TWICE A WEEK
     Route: 061
     Dates: start: 2012, end: 201309
  2. ANDROGEL [Suspect]
     Dosage: 40.5 MILLIGRAMS DAILY
     Route: 061
     Dates: start: 201309

REACTIONS (4)
  - Inappropriate schedule of drug administration [Unknown]
  - Melanocytic naevus [Not Recovered/Not Resolved]
  - Drug ineffective [Not Recovered/Not Resolved]
  - Drug ineffective [Not Recovered/Not Resolved]
